FAERS Safety Report 21752516 (Version 1)
Quarter: 2022Q4

REPORT INFORMATION
  Report Type: Spontaneous
  Country: US (occurrence: US)
  Receive Date: 20221220
  Receipt Date: 20221220
  Transmission Date: 20230113
  Serious: Yes (Other)
  Sender: FDA-Public Use
  Company Number: US-TAKEDA-2022TUS097102

PATIENT
  Weight: 47 kg

DRUGS (1)
  1. MOTEGRITY [Suspect]
     Active Substance: PRUCALOPRIDE SUCCINATE
     Indication: Product used for unknown indication
     Dosage: UNK
     Route: 065
     Dates: start: 202205

REACTIONS (5)
  - Myocardial infarction [Unknown]
  - Arteriospasm coronary [Unknown]
  - Back pain [Unknown]
  - Dyspepsia [Unknown]
  - Raynaud^s phenomenon [Unknown]
